FAERS Safety Report 20076954 (Version 1)
Quarter: 2021Q4

REPORT INFORMATION
  Report Type: Spontaneous
  Country: US (occurrence: None)
  Receive Date: 20211115
  Receipt Date: 20211115
  Transmission Date: 20220304
  Serious: No
  Sender: FDA-Public Use
  Company Number: None

PATIENT
  Sex: Female

DRUGS (15)
  1. ENBREL [Suspect]
     Active Substance: ETANERCEPT
     Indication: Psoriasis
     Dosage: OTHER QUANTITY : 1 PEN;?FREQUENCY : WEEKLY;?
     Route: 058
     Dates: start: 20200606
  2. BACLOFEN [Concomitant]
     Active Substance: BACLOFEN
  3. BETAMETH VALLOT [Concomitant]
  4. DULOXETINE [Concomitant]
     Active Substance: DULOXETINE
  5. FLUCONAZOLE [Concomitant]
     Active Substance: FLUCONAZOLE
  6. FLUTICASONE SPR [Concomitant]
  7. GABAPENTIN [Concomitant]
     Active Substance: GABAPENTIN
  8. KETOCONAZOLE CRE [Concomitant]
  9. LOSARTAN POTASSIUM [Concomitant]
     Active Substance: LOSARTAN POTASSIUM
  10. ROSUVASTATIN [Concomitant]
     Active Substance: ROSUVASTATIN
  11. TOPIRAMATE [Concomitant]
     Active Substance: TOPIRAMATE
  12. TRIAMCINOLON OIN [Concomitant]
  13. HYDROCHLOROTHIAZIDE\TRIAMTERENE [Concomitant]
     Active Substance: HYDROCHLOROTHIAZIDE\TRIAMTERENE
  14. VITAMIN D [Concomitant]
     Active Substance: VITAMIN D NOS
  15. ZOLPIDEM [Concomitant]
     Active Substance: ZOLPIDEM TARTRATE

REACTIONS (1)
  - Therapy change [None]
